FAERS Safety Report 17779289 (Version 1)
Quarter: 2020Q2

REPORT INFORMATION
  Report Type: Report from Study
  Country: CA (occurrence: CA)
  Receive Date: 20200514
  Receipt Date: 20200514
  Transmission Date: 20200714
  Serious: Yes (Hospitalization, Other)
  Sender: FDA-Public Use
  Company Number: CA-BRISTOL-MYERS SQUIBB COMPANY-BMS-2020-037708

PATIENT
  Age: 74 Year
  Sex: Male

DRUGS (1)
  1. ABATACEPT [Suspect]
     Active Substance: ABATACEPT
     Indication: RHEUMATOID ARTHRITIS
     Dosage: 125 MILLIGRAM, QWK
     Route: 058
     Dates: start: 20160420, end: 20190926

REACTIONS (4)
  - Skin burning sensation [Recovering/Resolving]
  - Myocardial infarction [Unknown]
  - Erythema [Recovering/Resolving]
  - Hepatitis [Unknown]

NARRATIVE: CASE EVENT DATE: 20190926
